FAERS Safety Report 6169145-2 (Version None)
Quarter: 2009Q2

REPORT INFORMATION
  Report Type: 
  Country: None (occurrence: None)
  Receive Date: 20090427
  Receipt Date: 20090414
  Transmission Date: 20091009
  Serious: Yes (Congenital Anomaly, Other)
  Sender: FDA-Public Use
  Company Number: US-ELI_LILLY_AND_COMPANY-US200904003121

PATIENT
  Sex: Female

DRUGS (1)
  1. PROZAC [Suspect]
     Indication: POSTPARTUM DEPRESSION
     Dosage: UNK, UNKNOWN
     Route: 064
     Dates: start: 20001201

REACTIONS (6)
  - DEXTROCARDIA [None]
  - DRUG EXPOSURE DURING PREGNANCY [None]
  - GASTROINTESTINAL MALFORMATION [None]
  - LIMB MALFORMATION [None]
  - NEONATAL RESPIRATORY DISTRESS SYNDROME [None]
  - PULMONARY VALVE STENOSIS [None]
